FAERS Safety Report 24150195 (Version 1)
Quarter: 2024Q3

REPORT INFORMATION
  Report Type: Spontaneous
  Country: HR (occurrence: HR)
  Receive Date: 20240730
  Receipt Date: 20240730
  Transmission Date: 20241016
  Serious: Yes (Other)
  Sender: TEVA
  Company Number: None

PATIENT
  Age: 42 Year
  Sex: Female

DRUGS (3)
  1. PREGABALIN [Suspect]
     Active Substance: PREGABALIN
     Indication: Product used for unknown indication
     Dosage: 10 TABLETS OF PREGABALIN OF 25 MG
     Route: 048
     Dates: start: 20240629, end: 20240629
  2. NAPROXEN SODIUM [Suspect]
     Active Substance: NAPROXEN\NAPROXEN SODIUM
     Indication: Product used for unknown indication
     Dosage: 1 DF = 1 TABLET
     Route: 048
     Dates: start: 20240629, end: 20240629
  3. QUETIAPINE [Suspect]
     Active Substance: QUETIAPINE
     Indication: Product used for unknown indication
     Dosage: 10 TABLETS OF 100 MG QUETIAPINE
     Route: 048
     Dates: start: 20240629, end: 20240629

REACTIONS (5)
  - Somnolence [Unknown]
  - Suicide attempt [Unknown]
  - Oxygen saturation decreased [Unknown]
  - Intentional overdose [Unknown]
  - Blood pressure decreased [Unknown]

NARRATIVE: CASE EVENT DATE: 20240629
